FAERS Safety Report 11062431 (Version 1)
Quarter: 2015Q2

REPORT INFORMATION
  Report Type: Spontaneous
  Country: US (occurrence: US)
  Receive Date: 20150424
  Receipt Date: 20150424
  Transmission Date: 20150821
  Serious: No
  Sender: FDA-Public Use
  Company Number: US-ASTRAZENECA-2015SE36483

PATIENT
  Age: 2970 Week
  Sex: Male
  Weight: 100.7 kg

DRUGS (8)
  1. VIAGRA [Concomitant]
     Active Substance: SILDENAFIL CITRATE
     Indication: ERECTILE DYSFUNCTION
     Dosage: AS REQUIRED
     Route: 048
  2. METFORMIN [Concomitant]
     Active Substance: METFORMIN HYDROCHLORIDE
     Indication: TYPE 2 DIABETES MELLITUS
     Route: 048
  3. BYDUREON [Suspect]
     Active Substance: EXENATIDE
     Indication: TYPE 2 DIABETES MELLITUS
     Dosage: 2 MG 4 COUNT VIAL
     Route: 058
     Dates: start: 20150309
  4. A CALCIUM BLOCKER [Concomitant]
     Indication: BLOOD PRESSURE ABNORMAL
     Route: 048
  5. A COMBINATION OF GLYBURIDE AND METFORMIN [Concomitant]
     Indication: TYPE 2 DIABETES MELLITUS
     Route: 048
     Dates: end: 2015
  6. SIMVASTATIN. [Concomitant]
     Active Substance: SIMVASTATIN
     Indication: BLOOD PRESSURE ABNORMAL
     Route: 048
  7. BABY ASPIRIN [Concomitant]
     Active Substance: ASPIRIN
  8. LOSARTAN [Concomitant]
     Active Substance: LOSARTAN
     Route: 048

REACTIONS (5)
  - Blood glucose increased [Not Recovered/Not Resolved]
  - Weight decreased [Unknown]
  - Diarrhoea [Recovering/Resolving]
  - Injection site mass [Unknown]
  - Decreased appetite [Not Recovered/Not Resolved]

NARRATIVE: CASE EVENT DATE: 201503
